FAERS Safety Report 5101585-2 (Version None)
Quarter: 2006Q3

REPORT INFORMATION
  Report Type: 
  Country: None (occurrence: None)
  Receive Date: 20060911
  Receipt Date: 20060811
  Transmission Date: 20061208
  Serious: Yes (Hospitalization)
  Sender: FDA-Public Use
  Company Number: PHRM2006FR02357

PATIENT
  Age: 36 Year
  Sex: Female

DRUGS (7)
  1. SYNTOCINON [Suspect]
     Indication: LABOUR INDUCTION
     Dosage: 1 DF, ONCE/SINGLE
     Dates: start: 20060810, end: 20060810
  2. SYNTOCINON [Suspect]
     Dosage: 5 IU, ONCE/SINGLE
     Route: 037
     Dates: start: 20060810, end: 20060810
  3. ATARAX [Concomitant]
     Dates: start: 20060810, end: 20060810
  4. ACETAMINOPHEN [Concomitant]
     Dosage: 1 DF, ONCE/SINGLE
     Dates: start: 20060810, end: 20060810
  5. MARCAINE [Concomitant]
     Dosage: 1 DF, ONCE/SINGLE
     Route: 037
     Dates: start: 20060810, end: 20060810
  6. MORPHINE [Concomitant]
     Dosage: 1 DF, ONCE/SINGLE
     Route: 037
     Dates: start: 20060810, end: 20060810
  7. CORTANCYL [Concomitant]
     Indication: MUSCULOSKELETAL PAIN
     Dosage: 5 MG/DAY
     Route: 048

REACTIONS (2)
  - INCORRECT ROUTE OF DRUG ADMINISTRATION [None]
  - WRONG DRUG ADMINISTERED [None]
